FAERS Safety Report 25879491 (Version 2)
Quarter: 2025Q4

REPORT INFORMATION
  Report Type: Report from Study
  Country: EU (occurrence: EU)
  Receive Date: 20251003
  Receipt Date: 20251016
  Transmission Date: 20260117
  Serious: Yes (Life-Threatening, Hospitalization)
  Sender: NOVARTIS
  Company Number: EU-002147023-NVSC2024FR218551

PATIENT
  Sex: Female
  Weight: 68 kg

DRUGS (8)
  1. SCEMBLIX [Suspect]
     Active Substance: ASCIMINIB HYDROCHLORIDE
     Indication: Philadelphia positive chronic myeloid leukaemia
     Dosage: 80 MG, QD (TOTAL DAILY DOSE)
     Route: 048
     Dates: start: 20241010
  2. SCEMBLIX [Suspect]
     Active Substance: ASCIMINIB HYDROCHLORIDE
     Dosage: UNK
     Route: 048
     Dates: end: 20241209
  3. SCEMBLIX [Suspect]
     Active Substance: ASCIMINIB HYDROCHLORIDE
     Dosage: 80 MG, QD, (TOTAL DAILY DOSE)
     Route: 048
     Dates: start: 20241127
  4. SCEMBLIX [Suspect]
     Active Substance: ASCIMINIB HYDROCHLORIDE
     Dosage: UNK
     Route: 048
     Dates: end: 20250605
  5. SCEMBLIX [Suspect]
     Active Substance: ASCIMINIB HYDROCHLORIDE
     Dosage: 40 MG, QD
     Route: 048
     Dates: start: 20250723
  6. SCEMBLIX [Suspect]
     Active Substance: ASCIMINIB HYDROCHLORIDE
     Dosage: UNK
     Route: 048
     Dates: end: 20251006
  7. CANDESARTAN [Concomitant]
     Active Substance: CANDESARTAN
     Indication: Hypertension
     Dosage: 8 MG
     Route: 048
     Dates: start: 2017
  8. HYDROCHLOROTHIAZIDE [Concomitant]
     Active Substance: HYDROCHLOROTHIAZIDE
     Indication: Hypertension
     Dosage: 12.5 MG
     Route: 048
     Dates: start: 2017

REACTIONS (8)
  - Neutropenia [Recovering/Resolving]
  - Limb injury [Recovered/Resolved with Sequelae]
  - Pyrexia [Recovered/Resolved]
  - Pancytopenia [Recovered/Resolved with Sequelae]
  - Dermatitis [Unknown]
  - Fatigue [Not Recovered/Not Resolved]
  - Obstructive sleep apnoea syndrome [Not Recovered/Not Resolved]
  - Anaemia [Not Recovered/Not Resolved]

NARRATIVE: CASE EVENT DATE: 20241105
